FAERS Safety Report 4299961-3 (Version None)
Quarter: 2004Q1

REPORT INFORMATION
  Report Type: 
  Country: None (occurrence: None)
  Receive Date: 20040220
  Receipt Date: 20030806
  Transmission Date: 20041129
  Serious: No
  Sender: FDA-Public Use
  Company Number: US-GLAXOSMITHKLINE-A0419797A

PATIENT
  Age: 86 Year
  Sex: Female

DRUGS (5)
  1. ALKERAN [Suspect]
     Indication: MULTIPLE MYELOMA
     Dosage: 2MG PER DAY
     Route: 048
     Dates: start: 20021001
  2. PREDNISONE [Concomitant]
     Route: 048
  3. SPIRONOLACTONE [Concomitant]
     Route: 048
  4. FOSAMAX [Concomitant]
     Route: 048
  5. PROTONIX [Concomitant]
     Route: 048

REACTIONS (2)
  - ANAEMIA [None]
  - HYPOTRICHOSIS [None]
